FAERS Safety Report 17493623 (Version 1)
Quarter: 2020Q1

REPORT INFORMATION
  Report Type: Spontaneous
  Country: BE (occurrence: BE)
  Receive Date: 20200304
  Receipt Date: 20200304
  Transmission Date: 20200409
  Serious: Yes (Hospitalization, Other)
  Sender: FDA-Public Use
  Company Number: BE-ACCORD-174407

PATIENT
  Age: 69 Year
  Sex: Female
  Weight: 58.9 kg

DRUGS (4)
  1. FLUOROURACIL. [Suspect]
     Active Substance: FLUOROURACIL
     Indication: GASTRIC CANCER STAGE II
     Dosage: FLOT REGIMEN
  2. FOLINIC ACID [Suspect]
     Active Substance: LEUCOVORIN
     Indication: GASTRIC CANCER STAGE II
     Dosage: FLOT REGIMEN
  3. OXALIPLATIN. [Suspect]
     Active Substance: OXALIPLATIN
     Indication: GASTRIC CANCER STAGE II
     Dosage: FLOT REGIMEN
  4. DOCETAXEL. [Suspect]
     Active Substance: DOCETAXEL
     Indication: GASTRIC CANCER STAGE II
     Dosage: FLOT REGIMEN

REACTIONS (4)
  - Septic shock [Unknown]
  - Off label use [Unknown]
  - Posterior reversible encephalopathy syndrome [Unknown]
  - Acute kidney injury [Unknown]
